FAERS Safety Report 9240813 (Version 1)
Quarter: 2013Q1

REPORT INFORMATION
  Report Type: Spontaneous
  Country: US (occurrence: None)
  Receive Date: 20121120
  Receipt Date: 20121120
  Transmission Date: 20140127
  Serious: No
  Sender: FDA-Public Use
  Company Number: 1000039573

PATIENT
  Age: 45 Year
  Sex: Female

DRUGS (7)
  1. VIIBRYD [Suspect]
     Indication: DEPRESSION
     Dosage: 10 MG (10 MG, 1 IN 1 D, PO
     Route: 048
     Dates: start: 20121002, end: 20121008
  2. VIIBRYD [Suspect]
     Indication: DEPRESSION
     Dosage: 40MG (40 MG, 1 IN 1 D, PO
     Route: 048
     Dates: start: 20121016, end: 20121016
  3. SEROQUEL (QUETIAPINE FUMARATE) [Concomitant]
  4. VYVANSE (LISDEXAMFETAMINE MESILATE) [Concomitant]
  5. ESCITALOPRAM (ESCITALOPRAM) [Concomitant]
  6. ATIVAN (LORAZEPAM) [Concomitant]
  7. NEURONTIN (GABAPENTIN) [Concomitant]

REACTIONS (4)
  - Feeling abnormal [None]
  - Agitation [None]
  - Rash [None]
  - Anxiety [None]
